FAERS Safety Report 9969559 (Version 1)
Quarter: 2014Q1

REPORT INFORMATION
  Report Type: Spontaneous
  Country: NL (occurrence: NL)
  Receive Date: 20140306
  Receipt Date: 20140306
  Transmission Date: 20141002
  Serious: Yes (Hospitalization)
  Sender: FDA-Public Use
  Company Number: NL-AMGEN-NLDSP2014015665

PATIENT
  Age: 66 Year
  Sex: Male
  Weight: 80 kg

DRUGS (8)
  1. ENBREL [Suspect]
     Indication: PSORIASIS
     Dosage: 25 MG, 2X/WEEK
     Route: 058
     Dates: start: 20070226
  2. AMLODIPINE [Concomitant]
     Dosage: 5 MG, UNK
     Route: 048
     Dates: start: 201310
  3. PERINDOPRIL [Concomitant]
     Dosage: 4 MG, UNK
     Route: 048
     Dates: start: 201310
  4. METOPROLOL SUCCINATE [Concomitant]
     Dosage: 25 MG, UNK
     Route: 048
     Dates: start: 201310
  5. ACETYLSALICYLIC ACID [Concomitant]
     Dosage: 80 MG, UNK
     Route: 048
  6. TICAGRELOR [Concomitant]
     Dosage: 90 MG, 2X/DAY
     Dates: start: 201310
  7. PRAVASTATIN SODIUM [Concomitant]
     Dosage: 40 MG, UNK
  8. PANTOZOL                           /01263204/ [Concomitant]
     Dosage: 40 MG, UNK
     Dates: start: 201310

REACTIONS (4)
  - Myocardial infarction [Recovered/Resolved]
  - Coronary artery occlusion [Recovered/Resolved]
  - Blood pressure inadequately controlled [Recovered/Resolved]
  - Chest pain [Recovered/Resolved]
